APPROVED DRUG PRODUCT: DEXMETHYLPHENIDATE HYDROCHLORIDE
Active Ingredient: DEXMETHYLPHENIDATE HYDROCHLORIDE
Strength: 30MG
Dosage Form/Route: CAPSULE, EXTENDED RELEASE;ORAL
Application: A202731 | Product #003 | TE Code: AB
Applicant: TEVA PHARMACEUTICALS USA
Approved: May 19, 2014 | RLD: No | RS: No | Type: RX